FAERS Safety Report 16406549 (Version 1)
Quarter: 2019Q2

REPORT INFORMATION
  Report Type: Spontaneous
  Country: US (occurrence: US)
  Receive Date: 20190607
  Receipt Date: 20190607
  Transmission Date: 20190711
  Serious: Yes (Hospitalization)
  Sender: FDA-Public Use
  Company Number: US-SAGENT PHARMACEUTICALS-2019SAG001068

PATIENT

DRUGS (7)
  1. LEUCOVORIN CALCIUM. [Suspect]
     Active Substance: LEUCOVORIN CALCIUM
     Indication: CHORIOCARCINOMA
     Dosage: UNK
  2. CYCLOPHOSPHAMIDE. [Suspect]
     Active Substance: CYCLOPHOSPHAMIDE
     Indication: CHORIOCARCINOMA
     Dosage: 600 MG/M2, UNK
     Route: 042
  3. ETOPOSIDE. [Suspect]
     Active Substance: ETOPOSIDE
     Indication: CHORIOCARCINOMA
     Dosage: 100 MG/M2, UNK
     Route: 042
  4. METHOTREXATE. [Suspect]
     Active Substance: METHOTREXATE
     Indication: CHORIOCARCINOMA
     Dosage: 300 MG/M2, UNK
     Route: 042
  5. CISPLATIN. [Suspect]
     Active Substance: CISPLATIN
     Indication: CHORIOCARCINOMA
     Dosage: 20 MG/M2, UNK
     Route: 042
  6. DACTINOMYCIN [Suspect]
     Active Substance: DACTINOMYCIN
     Indication: CHORIOCARCINOMA
     Dosage: 0.5 MG, UNK
     Route: 040
  7. VINCRISTINE [Suspect]
     Active Substance: VINCRISTINE
     Indication: CHORIOCARCINOMA
     Dosage: 1 MG/M2, UNK
     Route: 040

REACTIONS (4)
  - Amenorrhoea [Unknown]
  - Febrile neutropenia [Unknown]
  - Neutropenia [Unknown]
  - Menopausal symptoms [Unknown]
